FAERS Safety Report 19386233 (Version 2)
Quarter: 2021Q2

REPORT INFORMATION
  Report Type: Spontaneous
  Country: JP (occurrence: JP)
  Receive Date: 20210608
  Receipt Date: 20210610
  Transmission Date: 20210717
  Serious: Yes (Hospitalization)
  Sender: FDA-Public Use
  Company Number: JP-JNJFOC-A-CH2020-202691

PATIENT
  Age: 1 Year
  Sex: Female

DRUGS (7)
  1. TRACLEER [Suspect]
     Active Substance: BOSENTAN
     Dosage: 4 MG, BID
     Route: 048
     Dates: start: 20160804, end: 20170417
  2. FLOLAN [Concomitant]
     Active Substance: EPOPROSTENOL SODIUM
     Indication: PULMONARY HYPERTENSION
     Dosage: 18.9 NG/KG, PER MIN
     Route: 041
     Dates: start: 20170415, end: 20170509
  3. REVATIO [Suspect]
     Active Substance: SILDENAFIL CITRATE
     Indication: PULMONARY ARTERIAL HYPERTENSION
     Route: 048
     Dates: start: 20170503, end: 20170510
  4. TRACLEER [Suspect]
     Active Substance: BOSENTAN
     Indication: PULMONARY ARTERIAL HYPERTENSION
     Dosage: 4 MG, TID
     Route: 048
     Dates: start: 20170503, end: 20170510
  5. REVATIO [Suspect]
     Active Substance: SILDENAFIL CITRATE
     Indication: PULMONARY ARTERIAL HYPERTENSION
     Route: 048
     Dates: start: 20160801, end: 20170417
  6. EPOPROSTENOL ACT [Suspect]
     Active Substance: EPOPROSTENOL
     Indication: PULMONARY ARTERIAL HYPERTENSION
     Dosage: 18.9NG/KG/MIN
     Route: 041
     Dates: start: 20170415, end: 20170509
  7. NITRIC OXIDE. [Suspect]
     Active Substance: NITRIC OXIDE
     Indication: PULMONARY ARTERIAL HYPERTENSION
     Dosage: DOSE UNKNOWN
     Route: 055

REACTIONS (2)
  - Pulmonary alveolar haemorrhage [Recovered/Resolved]
  - Off label use [Unknown]

NARRATIVE: CASE EVENT DATE: 20170510
